FAERS Safety Report 7153307-1 (Version None)
Quarter: 2010Q4

REPORT INFORMATION
  Report Type: 
  Country: None (occurrence: None)
  Receive Date: 20101209
  Receipt Date: 20101209
  Transmission Date: 20110411
  Serious: Yes (Hospitalization)
  Sender: FDA-Public Use
  Company Number: None

PATIENT
  Sex: Female
  Weight: 122.4 kg

DRUGS (3)
  1. AVASTIN [Suspect]
     Indication: HAEMORRHOIDAL HAEMORRHAGE
     Dates: start: 20101004, end: 20101115
  2. AVASTIN [Suspect]
     Indication: NEUTROPENIA
     Dates: start: 20101004, end: 20101115
  3. AVASTIN [Suspect]
     Indication: PROCTALGIA
     Dates: start: 20101004, end: 20101115

REACTIONS (2)
  - HAEMORRHOIDAL HAEMORRHAGE [None]
  - MENORRHAGIA [None]
